FAERS Safety Report 6847029-1 (Version None)
Quarter: 2010Q3

REPORT INFORMATION
  Report Type: 
  Country: None (occurrence: None)
  Receive Date: 20100716
  Receipt Date: 20100707
  Transmission Date: 20110219
  Serious: Yes (Hospitalization)
  Sender: FDA-Public Use
  Company Number: US-BIOGENIDEC-2010BI009971

PATIENT
  Age: 35 Year
  Sex: Female

DRUGS (5)
  1. TYSABRI [Suspect]
     Indication: MULTIPLE SCLEROSIS
     Route: 042
     Dates: start: 20080610
  2. IRON SUPPLEMENTS [Concomitant]
  3. BACLOFEN [Concomitant]
  4. TOPAMAX [Concomitant]
  5. LEXAPRO [Concomitant]

REACTIONS (2)
  - POSTPARTUM HAEMORRHAGE [None]
  - PREGNANCY [None]
